FAERS Safety Report 6278782-6 (Version None)
Quarter: 2009Q3

REPORT INFORMATION
  Report Type: 
  Country: None (occurrence: None)
  Receive Date: 20090723
  Receipt Date: 20070525
  Transmission Date: 20100115
  Serious: Yes (Other)
  Sender: FDA-Public Use
  Company Number: US-ASTRAZENECA-2006UW23658

PATIENT
  Age: 43 Year
  Sex: Female
  Weight: 103.4 kg

DRUGS (15)
  1. SEROQUEL [Suspect]
     Indication: BIPOLAR DISORDER
     Dosage: 400 MG TO 600 MG NIGHTLY
     Route: 048
     Dates: start: 20030131
  2. SEROQUEL [Suspect]
     Route: 048
     Dates: end: 20050101
  3. ABILIFY [Concomitant]
  4. RISPERDAL [Concomitant]
  5. ZYPREXA [Concomitant]
  6. ZANTAC [Concomitant]
     Dates: start: 20030131
  7. PAXIL CR [Concomitant]
     Route: 048
     Dates: start: 20030131
  8. AMBIEN [Concomitant]
     Dates: start: 20030131
  9. XANAX [Concomitant]
     Dates: start: 20030131
  10. PROTONIX [Concomitant]
     Dates: start: 20030206
  11. LIPITOR [Concomitant]
     Route: 048
     Dates: start: 20041103
  12. METHADONE HCL [Concomitant]
     Route: 048
     Dates: start: 20040420
  13. NEURONTIN [Concomitant]
     Dosage: 300 MG BID, 300 MG TID
     Dates: start: 20050420
  14. EFFEXOR [Concomitant]
     Route: 048
     Dates: start: 20060308
  15. TRILEPTAL [Concomitant]
     Route: 048
     Dates: start: 20040720

REACTIONS (4)
  - DIABETES MELLITUS [None]
  - DIABETES MELLITUS INADEQUATE CONTROL [None]
  - DIABETIC NEUROPATHY [None]
  - TYPE 2 DIABETES MELLITUS [None]
